FAERS Safety Report 15997351 (Version 1)
Quarter: 2019Q1

REPORT INFORMATION
  Report Type: Spontaneous
  Country: US (occurrence: US)
  Receive Date: 20190222
  Receipt Date: 20190222
  Transmission Date: 20190418
  Serious: Yes (Other)
  Sender: FDA-Public Use
  Company Number: PHEH2019US008084

PATIENT
  Sex: Male

DRUGS (1)
  1. TASIGNA [Suspect]
     Active Substance: NILOTINIB
     Indication: CHRONIC MYELOID LEUKAEMIA
     Dosage: UNK
     Route: 048
     Dates: start: 201012

REACTIONS (8)
  - Diabetes mellitus [Unknown]
  - Tachycardia [Unknown]
  - Cough [Unknown]
  - Dyspnoea [Unknown]
  - Coronary artery disease [Unknown]
  - Respiratory tract infection [Unknown]
  - Pyrexia [Unknown]
  - Asthma [Unknown]
